FAERS Safety Report 6102389-4 (Version None)
Quarter: 2009Q1

REPORT INFORMATION
  Report Type: 
  Country: None (occurrence: None)
  Receive Date: 20090304
  Receipt Date: 20090225
  Transmission Date: 20090719
  Serious: Yes (Hospitalization)
  Sender: FDA-Public Use
  Company Number: FR-ROCHE-545411

PATIENT
  Sex: Male

DRUGS (12)
  1. ROCEPHIN [Suspect]
     Indication: DRUG USE FOR UNKNOWN INDICATION
     Dosage: FORM: INJECTABLE SOLUTION
     Route: 042
     Dates: start: 20070826, end: 20071203
  2. ROCEPHIN [Suspect]
     Dosage: RE-INTRODUCED.
     Route: 042
     Dates: start: 20071214
  3. BACTRIM [Suspect]
     Indication: DRUG USE FOR UNKNOWN INDICATION
     Dosage: DOSAGE REPORTED: 2 DOSES EVERYDAY.
     Route: 048
     Dates: start: 20070822, end: 20071203
  4. BACTRIM [Suspect]
     Dosage: RE-INTRODUCED
     Route: 048
     Dates: end: 20071211
  5. DURAGESIC-100 [Suspect]
     Indication: DRUG USE FOR UNKNOWN INDICATION
     Dosage: ROUTE: LOCAL
     Route: 062
     Dates: start: 20071006
  6. SPECIAFOLDINE [Suspect]
     Indication: DRUG USE FOR UNKNOWN INDICATION
     Route: 048
     Dates: start: 20070922
  7. KARDEGIC [Suspect]
     Dosage: DOSAGE REPORTED: ONE DOSE EVERYDAY
     Route: 048
     Dates: start: 20010101
  8. ARANESP [Suspect]
     Dosage: FORM: INJECTABLE SOLUTION
     Route: 058
     Dates: start: 20010101
  9. THALIDOMIDE [Suspect]
     Dosage: DRUG NAME REPORTED: THALIDOMIDE LAPHAL
     Route: 048
     Dates: start: 20010101
  10. ZYVOXID [Suspect]
     Indication: DRUG USE FOR UNKNOWN INDICATION
     Route: 048
     Dates: start: 20071004, end: 20071203
  11. VIBRAMYCINE [Suspect]
     Indication: DRUG USE FOR UNKNOWN INDICATION
     Dosage: DRUG NAME REPORTED: VIBRAMYCIN 100
     Route: 048
     Dates: start: 20070822, end: 20071004
  12. TIENAM [Concomitant]
     Dates: end: 20070826

REACTIONS (1)
  - HEPATITIS CHOLESTATIC [None]
